FAERS Safety Report 16243365 (Version 1)
Quarter: 2019Q2

REPORT INFORMATION
  Report Type: Spontaneous
  Country: US (occurrence: US)
  Receive Date: 20190426
  Receipt Date: 20190426
  Transmission Date: 20190711
  Serious: Yes (Death, Other)
  Sender: FDA-Public Use
  Company Number: US-PFIZER INC-2019175591

PATIENT
  Age: 77 Year
  Sex: Female
  Weight: 59.41 kg

DRUGS (1)
  1. IBRANCE [Suspect]
     Active Substance: PALBOCICLIB
     Indication: BREAST CANCER METASTATIC
     Dosage: 100 MG, 1X/DAY,(ORAL, ONCE A DAY )
     Route: 048

REACTIONS (3)
  - Weight decreased [Unknown]
  - Death [Fatal]
  - Pulmonary haemorrhage [Unknown]

NARRATIVE: CASE EVENT DATE: 20190404
